FAERS Safety Report 8901362 (Version 2)
Quarter: 2012Q4

REPORT INFORMATION
  Report Type: 
  Country: US (occurrence: US)
  Receive Date: 20121109
  Receipt Date: 20121128
  Transmission Date: 20130627
  Serious: Yes (Other)
  Sender: FDA-Public Use
  Company Number: US-PFIZER INC-2012279873

PATIENT
  Age: 48 Year
  Sex: Female
  Weight: 100 kg

DRUGS (9)
  1. LYRICA [Suspect]
     Indication: FIBROMYALGIA
     Dosage: 300 mg, 2x/day
     Route: 048
     Dates: start: 2010
  2. LYRICA [Suspect]
     Indication: PAIN
  3. LEVOTHYROXINE [Concomitant]
     Indication: HYPERTHYROIDISM
     Dosage: 175 ug, daily
  4. VITAMIN D [Concomitant]
     Dosage: daily
  5. VICODIN [Concomitant]
     Indication: PAIN
     Dosage: PRN
  6. SYNTHROID [Concomitant]
     Dosage: 75 ug, AM
  7. VITAMIN B12 [Concomitant]
     Dosage: daily
  8. PRILOSEC [Concomitant]
     Dosage: qhs X 1
     Route: 048
  9. INTEGRA [Concomitant]
     Dosage: daily

REACTIONS (3)
  - Pneumonia [Recovering/Resolving]
  - Malaise [Not Recovered/Not Resolved]
  - Nasopharyngitis [Not Recovered/Not Resolved]
